FAERS Safety Report 5279423-7 (Version None)
Quarter: 2007Q1

REPORT INFORMATION
  Report Type: 
  Country: None (occurrence: None)
  Receive Date: 20061213
  Receipt Date: 20060619
  Transmission Date: 20070707
  Serious: No
  Sender: FDA-Public Use
  Company Number: 2006UW12956

PATIENT

DRUGS (1)
  1. SEROQUEL [Suspect]

REACTIONS (1)
  - PANCREATITIS [None]
